FAERS Safety Report 5241659-9 (Version None)
Quarter: 2007Q1

REPORT INFORMATION
  Report Type: 
  Country: None (occurrence: None)
  Receive Date: 20070220
  Receipt Date: 20070208
  Transmission Date: 20070707
  Serious: Yes (Other)
  Sender: FDA-Public Use
  Company Number: FR-GILEAD-2007-0011251

PATIENT
  Age: 58 Year
  Sex: Male

DRUGS (8)
  1. HEPSERA [Suspect]
     Indication: HEPATITIS B
     Route: 048
     Dates: start: 20020101, end: 20061201
  2. AMLOR [Concomitant]
     Route: 048
  3. ZESTRIL [Concomitant]
     Route: 048
  4. ACARBOSE [Concomitant]
     Route: 048
  5. DIAMICRON [Concomitant]
     Route: 048
  6. CARDEGIC [Concomitant]
     Route: 048
  7. EFFERALGAN CODEIN [Concomitant]
     Route: 048
  8. OROCAL D3 [Concomitant]
     Route: 048

REACTIONS (6)
  - ARTHRALGIA [None]
  - BONE PAIN [None]
  - HYPOPHOSPHATAEMIA [None]
  - OSTEOMALACIA [None]
  - RENAL FAILURE [None]
  - STRESS FRACTURE [None]
